FAERS Safety Report 7287318-2 (Version None)
Quarter: 2011Q1

REPORT INFORMATION
  Report Type: 
  Country: None (occurrence: None)
  Receive Date: 20110207
  Receipt Date: 20110207
  Transmission Date: 20110831
  Serious: Yes (Other)
  Sender: FDA-Public Use
  Company Number: None

PATIENT
  Sex: Male
  Weight: 104.3273 kg

DRUGS (3)
  1. SPIRIVA [Suspect]
  2. SPIRIVA [Suspect]
  3. SPIRIVA [Suspect]
     Indication: RESPIRATORY DISORDER
     Dosage: 1 DOSE 18MCG 1 TIME DAILY INHALED
     Route: 055
     Dates: start: 20100101, end: 20110101

REACTIONS (2)
  - DEVICE MALFUNCTION [None]
  - CAPSULE PHYSICAL ISSUE [None]
